FAERS Safety Report 10305732 (Version 1)
Quarter: 2014Q3

REPORT INFORMATION
  Report Type: Spontaneous
  Country: PL (occurrence: KR)
  Receive Date: 20140715
  Receipt Date: 20140715
  Transmission Date: 20150326
  Serious: Yes (Hospitalization)
  Sender: FDA-Public Use
  Company Number: PL-BAYER-2014-101984

PATIENT
  Age: 52 Year
  Sex: Male

DRUGS (1)
  1. ASPIRIN PROTECT [Suspect]
     Active Substance: ASPIRIN

REACTIONS (3)
  - Myocardial infarction [None]
  - Malaise [None]
  - Fatigue [None]
